FAERS Safety Report 6868742-6 (Version None)
Quarter: 2010Q3

REPORT INFORMATION
  Report Type: 
  Country: None (occurrence: None)
  Receive Date: 20100722
  Receipt Date: 20080603
  Transmission Date: 20110219
  Serious: No
  Sender: FDA-Public Use
  Company Number: US-PFIZER INC-2008048555

PATIENT
  Sex: Female
  Weight: 81.818 kg

DRUGS (3)
  1. CHANTIX [Suspect]
     Indication: SMOKING CESSATION THERAPY
     Route: 048
     Dates: start: 20080501, end: 20080602
  2. WELLBUTRIN [Concomitant]
     Route: 048
  3. VITAMINS [Concomitant]
     Route: 048

REACTIONS (4)
  - AGGRESSION [None]
  - INCORRECT DOSE ADMINISTERED [None]
  - MALAISE [None]
  - NAUSEA [None]
